FAERS Safety Report 9517293 (Version 1)
Quarter: 2013Q3

REPORT INFORMATION
  Report Type: Spontaneous
  Country: US (occurrence: US)
  Receive Date: 20130911
  Receipt Date: 20130911
  Transmission Date: 20140515
  Serious: No
  Sender: FDA-Public Use
  Company Number: US-ASTRAZENECA-2013SE56166

PATIENT
  Age: 68 Year
  Sex: Female
  Weight: 81.6 kg

DRUGS (1)
  1. SYMBICORT [Suspect]
     Indication: CHRONIC OBSTRUCTIVE PULMONARY DISEASE
     Dosage: 160/4.5, 2 PUFFS BID
     Route: 055
     Dates: start: 201303

REACTIONS (4)
  - Dyspnoea [Unknown]
  - Dyspnoea [Unknown]
  - Intentional drug misuse [Unknown]
  - Circumstance or information capable of leading to medication error [Unknown]
